FAERS Safety Report 9697465 (Version 2)
Quarter: 2013Q4

REPORT INFORMATION
  Report Type: Report from Study
  Country: US (occurrence: US)
  Receive Date: 20131120
  Receipt Date: 20131120
  Transmission Date: 20140711
  Serious: Yes (Other)
  Sender: FDA-Public Use
  Company Number: PHEH2013US021861

PATIENT
  Age: 79 Year
  Sex: Female

DRUGS (9)
  1. TASIGNA [Suspect]
     Indication: CHRONIC MYELOID LEUKAEMIA
     Dosage: 300 MG, BID
     Route: 048
     Dates: start: 20130813, end: 20130819
  2. TASIGNA [Interacting]
     Dosage: 150 MG, BID
     Dates: start: 20130828, end: 20131015
  3. WARFARIN [Interacting]
     Indication: ATRIAL FIBRILLATION
     Dosage: UNK UKN, UNK
  4. PLAVIX [Suspect]
     Indication: TRANSIENT ISCHAEMIC ATTACK
     Dosage: 75 MG, DAILY
  5. METOPROLOL [Concomitant]
     Indication: BLOOD PRESSURE
     Dosage: 75 MG, QAM AND 50 MG QPM
  6. TRADJENTA [Concomitant]
     Indication: DIABETES MELLITUS
     Dosage: 5 MG, DAILY
  7. LIPITOR [Concomitant]
     Dosage: 40 MG, DAILY
  8. GLEEVEC [Concomitant]
     Indication: CHRONIC MYELOID LEUKAEMIA
     Dosage: 400 MG, DAILY
  9. LISINOPRIL + HIDROCLOROTIAZIDA [Concomitant]
     Dosage: 1 DF, DAILY

REACTIONS (12)
  - Conjunctival haemorrhage [Recovering/Resolving]
  - Hepatic enzyme increased [Recovering/Resolving]
  - Eye haemorrhage [Recovering/Resolving]
  - Intraocular pressure increased [Unknown]
  - Visual acuity reduced [Unknown]
  - International normalised ratio increased [Unknown]
  - Vision blurred [Unknown]
  - Ocular hyperaemia [Unknown]
  - Eye swelling [Unknown]
  - Eyelid oedema [Unknown]
  - Eye pain [Unknown]
  - Drug interaction [Unknown]
